FAERS Safety Report 7799879-5 (Version None)
Quarter: 2011Q4

REPORT INFORMATION
  Report Type: 
  Country: None (occurrence: None)
  Receive Date: 20111006
  Receipt Date: 20110927
  Transmission Date: 20120403
  Serious: Yes (Hospitalization, Other)
  Sender: FDA-Public Use
  Company Number: US-ASTRAZENECA-2010SE08435

PATIENT
  Age: 72 Year
  Sex: Male

DRUGS (1)
  1. ATACAND [Suspect]
     Route: 048

REACTIONS (6)
  - LOCALISED INFECTION [None]
  - DYSPNOEA [None]
  - JOINT INJURY [None]
  - HYPOAESTHESIA [None]
  - DEPRESSION [None]
  - CELLULITIS [None]
